FAERS Safety Report 14169566 (Version 1)
Quarter: 2017Q4

REPORT INFORMATION
  Report Type: Spontaneous
  Country: US (occurrence: US)
  Receive Date: 20171108
  Receipt Date: 20171108
  Transmission Date: 20180321
  Serious: Yes (Hospitalization)
  Sender: FDA-Public Use
  Company Number: US-MYLANLABS-2017M1069249

PATIENT
  Age: 16 Year
  Sex: Female

DRUGS (4)
  1. VALPROIC ACID. [Suspect]
     Active Substance: VALPROIC ACID
     Route: 065
  2. NEFAZODONE [Concomitant]
     Active Substance: NEFAZODONE
     Indication: BIPOLAR DISORDER
     Route: 065
  3. OLANZAPINE. [Concomitant]
     Active Substance: OLANZAPINE
     Indication: BIPOLAR DISORDER
     Route: 065
  4. VALPROIC ACID. [Suspect]
     Active Substance: VALPROIC ACID
     Indication: BIPOLAR DISORDER
     Dosage: 20 PILLS; 250MG EACH
     Route: 065

REACTIONS (2)
  - Intentional overdose [Recovered/Resolved]
  - Electrocardiogram abnormal [Recovered/Resolved]
